FAERS Safety Report 14697868 (Version 1)
Quarter: 2018Q1

REPORT INFORMATION
  Report Type: Spontaneous
  Country: US (occurrence: US)
  Receive Date: 20180330
  Receipt Date: 20180330
  Transmission Date: 20180509
  Serious: No
  Sender: FDA-Public Use
  Company Number: US-SA-2018SA042037

PATIENT
  Sex: Female

DRUGS (4)
  1. ALLEGRA ALLERGY [Suspect]
     Active Substance: FEXOFENADINE HYDROCHLORIDE
     Indication: OEDEMA
     Dosage: DOSE-ONE EVERY HOUR IN THE MORNING UNTIL SHE TAKES 4 TABLES.
     Route: 048
  2. ALLEGRA ALLERGY [Suspect]
     Active Substance: FEXOFENADINE HYDROCHLORIDE
     Indication: FEELING ABNORMAL
     Dosage: DOSE-ONE EVERY HOUR IN THE MORNING UNTIL SHE TAKES 4 TABLES.
     Route: 048
  3. ALLEGRA ALLERGY [Suspect]
     Active Substance: FEXOFENADINE HYDROCHLORIDE
     Indication: FEELING ABNORMAL
     Dosage: DOSE-ONE 180 MG IN MORNING AND ONE AT NIGHT
     Route: 048
  4. ALLEGRA ALLERGY [Suspect]
     Active Substance: FEXOFENADINE HYDROCHLORIDE
     Indication: OEDEMA
     Dosage: DOSE-ONE 180 MG IN MORNING AND ONE AT NIGHT
     Route: 048

REACTIONS (1)
  - Drug ineffective [Unknown]
